FAERS Safety Report 12160878 (Version 1)
Quarter: 2016Q1

REPORT INFORMATION
  Report Type: Spontaneous
  Country: US (occurrence: US)
  Receive Date: 20160308
  Receipt Date: 20160308
  Transmission Date: 20160526
  Serious: No
  Sender: FDA-Public Use
  Company Number: US-PRESTIUM-2015RN000075

PATIENT
  Age: 72 Year
  Sex: Male

DRUGS (2)
  1. OLUX-E [Suspect]
     Active Substance: CLOBETASOL PROPIONATE
     Indication: SKIN IRRITATION
  2. OLUX-E [Suspect]
     Active Substance: CLOBETASOL PROPIONATE
     Indication: DRY SKIN
     Dosage: UNK, QD
     Route: 061
     Dates: start: 20151005

REACTIONS (2)
  - Underdose [Not Recovered/Not Resolved]
  - Drug ineffective [Not Recovered/Not Resolved]

NARRATIVE: CASE EVENT DATE: 201510
